FAERS Safety Report 11015088 (Version 2)
Quarter: 2015Q2

REPORT INFORMATION
  Report Type: Spontaneous
  Country: US (occurrence: US)
  Receive Date: 20150412
  Receipt Date: 20150525
  Transmission Date: 20150821
  Serious: No
  Sender: FDA-Public Use
  Company Number: US-JNJFOC-20150110032

PATIENT
  Age: 58 Year
  Sex: Female
  Weight: 88.91 kg

DRUGS (4)
  1. HYDROQUINONE. [Concomitant]
     Active Substance: HYDROQUINONE
     Indication: SYSTEMIC LUPUS ERYTHEMATOSUS
  2. SIMPONI [Suspect]
     Active Substance: GOLIMUMAB
     Indication: PRODUCT USED FOR UNKNOWN INDICATION
     Route: 058
     Dates: start: 201411
  3. WARFARIN [Concomitant]
     Active Substance: WARFARIN
     Indication: ANTICOAGULANT THERAPY
     Dosage: 8MG, 2MG,10MG DAILY, ALTERNATING??DAYS
  4. ZOLOFT [Concomitant]
     Active Substance: SERTRALINE HYDROCHLORIDE
     Indication: BIPOLAR I DISORDER

REACTIONS (2)
  - Product packaging issue [Unknown]
  - Accidental exposure to product [Unknown]

NARRATIVE: CASE EVENT DATE: 201501
